FAERS Safety Report 5306526-0 (Version None)
Quarter: 2007Q2

REPORT INFORMATION
  Report Type: 
  Country: None (occurrence: None)
  Receive Date: 20070418
  Receipt Date: 20070404
  Transmission Date: 20071010
  Serious: Yes (Other)
  Sender: FDA-Public Use
  Company Number: 2007RR-06801

PATIENT
  Age: 60 Year
  Sex: Male

DRUGS (1)
  1. FUROSEMIDE [Suspect]
     Dosage: 400 MG, QD, INTRAVENOUS
     Route: 042

REACTIONS (3)
  - DILATATION VENTRICULAR [None]
  - EJECTION FRACTION DECREASED [None]
  - PULMONARY OEDEMA [None]
